FAERS Safety Report 14566925 (Version 1)
Quarter: 2018Q1

REPORT INFORMATION
  Report Type: Spontaneous
  Country: ES (occurrence: ES)
  Receive Date: 20180223
  Receipt Date: 20180223
  Transmission Date: 20180509
  Serious: Yes (Life-Threatening, Hospitalization)
  Sender: FDA-Public Use
  Company Number: ES-AUROBINDO-AUR-APL-2018-009830

PATIENT
  Age: 68 Year
  Sex: Female

DRUGS (5)
  1. DIAZEPAM. [Suspect]
     Active Substance: DIAZEPAM
     Indication: PRODUCT USED FOR UNKNOWN INDICATION
     Dosage: 50 CPS ()
     Route: 048
     Dates: start: 20170509, end: 20170509
  2. ZIPRASIDONA [Interacting]
     Active Substance: ZIPRASIDONE
     Indication: SUICIDE ATTEMPT
     Dosage: 56 CPS ()
     Route: 048
     Dates: start: 20170509, end: 20170509
  3. LAMICTAL [Interacting]
     Active Substance: LAMOTRIGINE
     Indication: SUICIDE ATTEMPT
     Dosage: 52 CPS ()
     Route: 048
     Dates: start: 20170509, end: 20170509
  4. SULPIRIDE [Interacting]
     Active Substance: SULPIRIDE
     Indication: SUICIDE ATTEMPT
     Dosage: 65 CPS ()
     Route: 048
     Dates: start: 20170509, end: 20170509
  5. FLUOXETINE [Suspect]
     Active Substance: FLUOXETINE HYDROCHLORIDE
     Indication: PRODUCT USED FOR UNKNOWN INDICATION
     Dosage: 21 CPS ()
     Route: 048
     Dates: start: 20170509, end: 20170509

REACTIONS (3)
  - Rhabdomyolysis [Recovered/Resolved]
  - Pancreatitis [Recovered/Resolved]
  - Depressed level of consciousness [Recovered/Resolved]

NARRATIVE: CASE EVENT DATE: 20170509
